FAERS Safety Report 6554958-5 (Version None)
Quarter: 2010Q1

REPORT INFORMATION
  Report Type: 
  Country: None (occurrence: None)
  Receive Date: 20100126
  Receipt Date: 20100126
  Transmission Date: 20100710
  Serious: Yes (Life-Threatening, Hospitalization)
  Sender: FDA-Public Use
  Company Number: None

PATIENT
  Age: 42 Year
  Sex: Female
  Weight: 65.7716 kg

DRUGS (1)
  1. NORTRIPTYLINE HCL [Suspect]
     Indication: PAIN MANAGEMENT
     Dates: start: 19990101, end: 20090808

REACTIONS (5)
  - CONDITION AGGRAVATED [None]
  - INCORRECT DOSE ADMINISTERED [None]
  - LOSS OF CONSCIOUSNESS [None]
  - MUSCLE DISORDER [None]
  - MUSCULAR WEAKNESS [None]
